FAERS Safety Report 20149356 (Version 1)
Quarter: 2021Q4

REPORT INFORMATION
  Report Type: Spontaneous
  Country: US (occurrence: US)
  Receive Date: 20211205
  Receipt Date: 20211205
  Transmission Date: 20220303
  Serious: No
  Sender: FDA-Public Use
  Company Number: US-SA-SAC20211201000738

PATIENT
  Sex: Female

DRUGS (11)
  1. DUPIXENT [Suspect]
     Active Substance: DUPILUMAB
     Dosage: 300 MG, QOW
     Route: 058
     Dates: start: 20190829
  2. AZITHROMYCIN [Concomitant]
     Active Substance: AZITHROMYCIN
  3. CYCLOBENZAPRINE [Concomitant]
     Active Substance: CYCLOBENZAPRINE
  4. MELOXICAM [Concomitant]
     Active Substance: MELOXICAM
  5. OMEPRAZOLE [Concomitant]
     Active Substance: OMEPRAZOLE
  6. PROAIR HFA [Concomitant]
     Active Substance: ALBUTEROL SULFATE
  7. TRIAMCINOLONE [Concomitant]
     Active Substance: TRIAMCINOLONE
  8. TRAMADOL [Concomitant]
     Active Substance: TRAMADOL
  9. PREDNISONE [Concomitant]
     Active Substance: PREDNISONE
  10. OLMESARTAN MEDOXOMIL [Concomitant]
     Active Substance: OLMESARTAN MEDOXOMIL
  11. BROM/PSE/DM [Concomitant]

REACTIONS (1)
  - Asthma [Unknown]
